FAERS Safety Report 7444522-8 (Version None)
Quarter: 2011Q2

REPORT INFORMATION
  Report Type: 
  Country: None (occurrence: None)
  Receive Date: 20110429
  Receipt Date: 20110411
  Transmission Date: 20111010
  Serious: No
  Sender: FDA-Public Use
  Company Number: US-B.I. PHARMACEUTICALS,INC./RIDGEFIELD-2011-BP-10715BP

PATIENT
  Age: 86 Year
  Sex: Male

DRUGS (6)
  1. FLOMAX [Suspect]
     Dosage: 0.8 MG
     Route: 048
     Dates: start: 20110101
  2. AMLODIPINE [Concomitant]
     Indication: HYPERTENSION
  3. FLOMAX [Suspect]
     Indication: BENIGN PROSTATIC HYPERPLASIA
     Dosage: 0.8 MG
     Route: 048
     Dates: start: 20050101, end: 20110101
  4. TAMSULOSIN HCL [Suspect]
     Indication: BENIGN PROSTATIC HYPERPLASIA
     Dosage: 0.8 MG
     Route: 048
     Dates: start: 20110101, end: 20110101
  5. SIMVASTATIN [Concomitant]
     Indication: BLOOD CHOLESTEROL INCREASED
  6. FINASTERIDE [Concomitant]
     Indication: BENIGN PROSTATIC HYPERPLASIA

REACTIONS (2)
  - BLOOD GLUCOSE INCREASED [None]
  - URINARY HESITATION [None]
